FAERS Safety Report 5569122-6 (Version None)
Quarter: 2007Q4

REPORT INFORMATION
  Report Type: 
  Country: None (occurrence: None)
  Receive Date: 20071220
  Receipt Date: 20070723
  Transmission Date: 20080405
  Serious: No
  Sender: FDA-Public Use
  Company Number: A0665804A

PATIENT
  Age: 76 Year
  Sex: Male

DRUGS (4)
  1. AVODART [Suspect]
     Indication: BENIGN PROSTATIC HYPERPLASIA
     Dosage: .5MG PER DAY
     Route: 048
     Dates: start: 20070709
  2. TERAZOSIN HCL [Concomitant]
  3. LIPITOR [Concomitant]
  4. AMLODIPINE [Concomitant]

REACTIONS (2)
  - NOCTURIA [None]
  - PHARMACEUTICAL PRODUCT COMPLAINT [None]
